FAERS Safety Report 7024204-7 (Version None)
Quarter: 2010Q4

REPORT INFORMATION
  Report Type: 
  Country: None (occurrence: None)
  Receive Date: 20101001
  Receipt Date: 20100921
  Transmission Date: 20110411
  Serious: Yes (Other)
  Sender: FDA-Public Use
  Company Number: US-PURDUE-USA-2010-0048103

PATIENT
  Sex: Male

DRUGS (5)
  1. OXYCONTIN [Suspect]
     Indication: BACK PAIN
     Dosage: 60 MG, BID
     Dates: start: 20100910
  2. OXYCODONE [Concomitant]
  3. TYLENOL (CAPLET) [Concomitant]
  4. ACTOS [Concomitant]
  5. METFORMIN [Concomitant]

REACTIONS (5)
  - BLOOD GLUCOSE FLUCTUATION [None]
  - DEHYDRATION [None]
  - DIARRHOEA [None]
  - PAIN [None]
  - VOMITING [None]
